FAERS Safety Report 17885744 (Version 3)
Quarter: 2021Q2

REPORT INFORMATION
  Report Type: Spontaneous
  Country: CA (occurrence: CA)
  Receive Date: 20200611
  Receipt Date: 20210629
  Transmission Date: 20210717
  Serious: Yes (Other)
  Sender: FDA-Public Use
  Company Number: CA-GLAXOSMITHKLINE-CA2020094840

PATIENT
  Age: 50 Year
  Sex: Female

DRUGS (2)
  1. THRIVE [Suspect]
     Active Substance: NICOTINE
     Indication: SMOKING CESSATION THERAPY
     Dosage: UNK
  2. HABITROL [Suspect]
     Active Substance: NICOTINE
     Indication: SMOKING CESSATION THERAPY
     Dosage: UNK
     Dates: start: 20200110

REACTIONS (12)
  - Depression [Unknown]
  - Condition aggravated [Recovering/Resolving]
  - Therapeutic response unexpected [Unknown]
  - Aggression [Unknown]
  - General physical health deterioration [Unknown]
  - Suicidal ideation [Unknown]
  - Intentional product misuse [Unknown]
  - Irritability [Unknown]
  - Paranoia [Unknown]
  - Withdrawal syndrome [Unknown]
  - Impatience [Unknown]
  - Nicotine dependence [Unknown]
